FAERS Safety Report 4742093-8 (Version None)
Quarter: 2005Q3

REPORT INFORMATION
  Report Type: 
  Country: None (occurrence: None)
  Receive Date: 20050810
  Receipt Date: 20050726
  Transmission Date: 20060218
  Serious: Yes (Death)
  Sender: FDA-Public Use
  Company Number: 2005S1004059

PATIENT
  Age: 77 Year
  Sex: Male

DRUGS (16)
  1. CLOZAPINE [Suspect]
     Indication: SCHIZOPHRENIA
     Dosage: 25 MG; QD; PO
     Route: 048
     Dates: start: 20040301, end: 20050501
  2. MORPHINE [Concomitant]
  3. LORAZEPAM [Concomitant]
  4. VANCOMYCIN [Concomitant]
  5. CARBIDOPA AND LEVODOPA [Concomitant]
  6. HEPARIN-FRACTION [Concomitant]
  7. SODIUM SALT [Concomitant]
  8. FAMOTIDINE [Concomitant]
  9. ATROPINE SULFATE [Concomitant]
  10. TRAZODONE [Concomitant]
  11. SERTRALINE HCL [Concomitant]
  12. POTASSIUM CHLORIDE [Concomitant]
  13. FUROSEMIDE [Concomitant]
  14. BIMATOPROST [Concomitant]
  15. IPRATROPIUM BROMIDE/SALBUTAMOL SULFATE) [Concomitant]
  16. ENOXOPORIN [Concomitant]

REACTIONS (2)
  - DEMENTIA [None]
  - FAILURE TO THRIVE [None]
